FAERS Safety Report 24259987 (Version 1)
Quarter: 2024Q3

REPORT INFORMATION
  Report Type: Spontaneous
  Country: US (occurrence: None)
  Receive Date: 20240827
  Receipt Date: 20240827
  Transmission Date: 20241016
  Serious: Yes (Other)
  Sender: Public
  Company Number: None

PATIENT
  Age: 66 Year
  Sex: Male
  Weight: 88.7 kg

DRUGS (1)
  1. OXALIPLATIN [Suspect]
     Active Substance: OXALIPLATIN
     Indication: Gastrointestinal adenocarcinoma
     Dosage: 180 MG EVERY 14 DATS UBTRAVENOUS ?
     Route: 042
     Dates: start: 20240807, end: 20240821

REACTIONS (1)
  - Chest pain [None]

NARRATIVE: CASE EVENT DATE: 20240821
